FAERS Safety Report 9665935 (Version 1)
Quarter: 2013Q4

REPORT INFORMATION
  Report Type: Spontaneous
  Country: US (occurrence: None)
  Receive Date: 20131101
  Receipt Date: 20131101
  Transmission Date: 20140711
  Serious: Yes (Other)
  Sender: FDA-Public Use
  Company Number: None

PATIENT
  Age: 26 Year
  Sex: Female
  Weight: 51.71 kg

DRUGS (1)
  1. AUGMENTIN 875MG [Suspect]
     Indication: SKIN INFECTION
     Route: 048

REACTIONS (2)
  - Panic reaction [None]
  - Dyspnoea [None]
